FAERS Safety Report 7271522-3 (Version None)
Quarter: 2011Q1

REPORT INFORMATION
  Report Type: 
  Country: None (occurrence: None)
  Receive Date: 20110128
  Receipt Date: 20110128
  Transmission Date: 20110831
  Serious: Yes (Other)
  Sender: FDA-Public Use
  Company Number: None

PATIENT
  Age: 12 Year
  Sex: Male
  Weight: 38.5557 kg

DRUGS (1)
  1. BUPROPION HCL [Suspect]
     Indication: AFFECTIVE DISORDER
     Dosage: 1 TAB -300 MG- DAILY PO
     Route: 048
     Dates: start: 20110124, end: 20110125

REACTIONS (3)
  - CRYING [None]
  - PRODUCT QUALITY ISSUE [None]
  - DIPLOPIA [None]
